FAERS Safety Report 25949002 (Version 1)
Quarter: 2025Q4

REPORT INFORMATION
  Report Type: Spontaneous
  Country: US (occurrence: US)
  Receive Date: 20251022
  Receipt Date: 20251022
  Transmission Date: 20260119
  Serious: Yes (Other)
  Sender: CIPLA
  Company Number: US-MLMSERVICE-20251002-PI666945-00054-1

PATIENT

DRUGS (4)
  1. ANASTROZOLE [Suspect]
     Active Substance: ANASTROZOLE
     Indication: Invasive ductal breast carcinoma
     Dosage: 1 MILLIGRAM, QD
     Route: 065
     Dates: start: 2016, end: 2021
  2. ANASTROZOLE [Suspect]
     Active Substance: ANASTROZOLE
     Indication: Hormone receptor positive breast cancer
  3. ANASTROZOLE [Suspect]
     Active Substance: ANASTROZOLE
     Indication: Hormone receptor positive breast cancer
  4. ANASTROZOLE [Suspect]
     Active Substance: ANASTROZOLE
     Indication: HER2 negative breast cancer

REACTIONS (3)
  - Intraductal proliferative breast lesion [Recovered/Resolved]
  - Follicular lymphoma [Recovered/Resolved]
  - Apocrine breast carcinoma [Recovered/Resolved]

NARRATIVE: CASE EVENT DATE: 20210101
